FAERS Safety Report 15688678 (Version 1)
Quarter: 2018Q4

REPORT INFORMATION
  Report Type: Spontaneous
  Country: US (occurrence: US)
  Receive Date: 20181205
  Receipt Date: 20181205
  Transmission Date: 20190205
  Serious: Yes (Death, Other)
  Sender: FDA-Public Use
  Company Number: US-ROCHE-2221419

PATIENT
  Age: 40 Year
  Sex: Female
  Weight: 50.3 kg

DRUGS (70)
  1. ANAKINRA [Suspect]
     Active Substance: ANAKINRA
     Indication: GRAFT VERSUS HOST DISEASE
  2. CITALOPRAM [Concomitant]
     Active Substance: CITALOPRAM HYDROBROMIDE
     Dosage: ONGOING
     Route: 065
     Dates: start: 20171226
  3. DAPTOMYCIN. [Concomitant]
     Active Substance: DAPTOMYCIN
     Dosage: ONGOING
     Route: 065
     Dates: start: 20180309
  4. MEROPENEM. [Concomitant]
     Active Substance: MEROPENEM
     Dosage: ONGOING
     Route: 065
     Dates: start: 20171021
  5. METRONIDAZOLE. [Concomitant]
     Active Substance: METRONIDAZOLE
     Route: 065
     Dates: start: 20171022, end: 20180320
  6. PIMECROLIMUS. [Concomitant]
     Active Substance: PIMECROLIMUS
     Dosage: ONGOING
     Route: 065
     Dates: start: 20180307
  7. PRAVASTATIN. [Concomitant]
     Active Substance: PRAVASTATIN
     Route: 065
     Dates: start: 20180320, end: 20180418
  8. URSODIOL. [Concomitant]
     Active Substance: URSODIOL
     Dosage: ONGOING
     Route: 065
     Dates: start: 20171016
  9. BRINCIDOFOVIR [Suspect]
     Active Substance: BRINCIDOFOVIR
     Indication: ADENOVIRUS INFECTION
     Route: 048
     Dates: start: 20180409, end: 20180418
  10. BRINCIDOFOVIR [Suspect]
     Active Substance: BRINCIDOFOVIR
     Route: 048
     Dates: start: 20171114
  11. ANAKINRA [Suspect]
     Active Substance: ANAKINRA
     Indication: POLYMYOSITIS
     Route: 042
     Dates: start: 20180412, end: 20180417
  12. BUDESONIDE. [Concomitant]
     Active Substance: BUDESONIDE
     Dosage: ONGOING
     Route: 065
     Dates: start: 20171216
  13. CIDOFOVIR. [Concomitant]
     Active Substance: CIDOFOVIR
     Route: 065
     Dates: start: 20180313, end: 20180403
  14. CLONIDINE. [Concomitant]
     Active Substance: CLONIDINE
     Dosage: ONGOING
     Route: 065
     Dates: start: 20180119
  15. HYDRALAZINE [Concomitant]
     Active Substance: HYDRALAZINE HYDROCHLORIDE
     Route: 065
     Dates: start: 20180407, end: 20180411
  16. HYDROXYZINE [Concomitant]
     Active Substance: HYDROXYZINE HYDROCHLORIDE
     Route: 065
     Dates: start: 20180303, end: 20180403
  17. INSULIN GLARGINE [Concomitant]
     Active Substance: INSULIN GLARGINE
     Route: 065
     Dates: start: 20171219, end: 20180411
  18. ISRADIPINE. [Concomitant]
     Active Substance: ISRADIPINE
     Dosage: ONGOING
     Route: 065
     Dates: start: 20171121
  19. LORAZEPAM. [Concomitant]
     Active Substance: LORAZEPAM
     Dosage: ONGOING
     Route: 065
     Dates: start: 20171019
  20. MUPIROCIN. [Concomitant]
     Active Substance: MUPIROCIN
     Dosage: ONGOING
     Route: 065
     Dates: start: 20180414
  21. OXYMETAZOLINE HCL [Concomitant]
     Active Substance: OXYMETAZOLINE HYDROCHLORIDE
     Dosage: ONGOING
     Route: 065
     Dates: start: 20180415
  22. PANTOPRAZOLE [Concomitant]
     Active Substance: PANTOPRAZOLE
     Dosage: ONGOING
     Route: 065
     Dates: start: 20171216
  23. PROBENECID. [Concomitant]
     Active Substance: PROBENECID
     Route: 065
     Dates: start: 20180313, end: 20180403
  24. OXYCODONE [Concomitant]
     Active Substance: OXYCODONE
     Route: 065
     Dates: start: 20171023
  25. ELTROMBOPAG [Suspect]
     Active Substance: ELTROMBOPAG
     Indication: PANCYTOPENIA
     Route: 048
     Dates: start: 20180215, end: 20180418
  26. ALBUTEROL. [Concomitant]
     Active Substance: ALBUTEROL
     Dosage: ONGOING
     Route: 065
     Dates: start: 20171107
  27. COLISTIMETHATE [Concomitant]
     Active Substance: COLISTIMETHATE SODIUM
     Route: 065
     Dates: start: 20180301, end: 20180331
  28. GRANISETRON HYDROCHLORIDE. [Concomitant]
     Active Substance: GRANISETRON HYDROCHLORIDE
     Dosage: ONGOING
     Route: 065
     Dates: start: 20171017
  29. HYDROCORTISONE. [Concomitant]
     Active Substance: HYDROCORTISONE
     Route: 065
     Dates: start: 20180307, end: 20180316
  30. INFLIXIMAB [Concomitant]
     Active Substance: INFLIXIMAB
     Route: 065
     Dates: start: 20180324, end: 20180409
  31. PETROLATUM. [Concomitant]
     Active Substance: PETROLATUM
     Route: 065
     Dates: start: 20180403
  32. SELENIUM [Concomitant]
     Active Substance: SELENIUM
     Dosage: ONGOING
     Route: 065
     Dates: start: 20180220
  33. DOMPERIDONE [Concomitant]
     Active Substance: DOMPERIDONE
     Dosage: ONGOING
     Route: 065
     Dates: start: 20171010
  34. FUROSEMIDE. [Concomitant]
     Active Substance: FUROSEMIDE
     Route: 065
     Dates: start: 20171009, end: 20180419
  35. AMINOCAPROIC ACID. [Concomitant]
     Active Substance: AMINOCAPROIC ACID
     Route: 065
     Dates: start: 20180311, end: 20180318
  36. CLOBETASOL [Concomitant]
     Active Substance: CLOBETASOL
     Dosage: ONGOING
     Route: 065
     Dates: start: 20180201
  37. DARBEPOETIN ALFA [Concomitant]
     Active Substance: DARBEPOETIN ALFA
     Dosage: ONGOING
     Route: 065
     Dates: start: 20180410
  38. MEDROXYPROGESTERONE [Concomitant]
     Active Substance: MEDROXYPROGESTERONE
     Dosage: ONGOING
     Route: 065
     Dates: start: 20171107
  39. POSACONAZOLE [Concomitant]
     Active Substance: POSACONAZOLE
     Route: 065
     Dates: start: 20180402, end: 20180412
  40. SODIUM CHLORIDE. [Concomitant]
     Active Substance: SODIUM CHLORIDE
     Dosage: ONGOING
     Route: 065
     Dates: start: 20180413
  41. AMLODIPINE [Concomitant]
     Active Substance: AMLODIPINE BESYLATE
     Route: 065
     Dates: start: 20180130, end: 20180419
  42. CARBAMIDE PEROXIDE [Concomitant]
     Active Substance: CARBAMIDE PEROXIDE
     Route: 065
     Dates: start: 20180329, end: 20180401
  43. INSULIN LISPRO [Concomitant]
     Active Substance: INSULIN LISPRO
     Dosage: ONGOING
     Route: 065
     Dates: start: 20171116
  44. METOCLOPRAMIDE. [Concomitant]
     Active Substance: METOCLOPRAMIDE
     Route: 065
     Dates: start: 20180404, end: 20180412
  45. NALBUPHINE HCL [Concomitant]
     Active Substance: NALBUPHINE HYDROCHLORIDE
     Dosage: ONGOING
     Route: 065
     Dates: start: 20180102
  46. SODIUM BICARBONATE. [Concomitant]
     Active Substance: SODIUM BICARBONATE
     Route: 065
     Dates: start: 20180414, end: 20180414
  47. ACETAMINOPHEN. [Concomitant]
     Active Substance: ACETAMINOPHEN
     Dosage: ONGOING
     Route: 065
     Dates: start: 20171005
  48. AMPHOTERICIN B. [Concomitant]
     Active Substance: AMPHOTERICIN B
     Dosage: UNKNOWN
     Route: 065
  49. CHLORHEXIDINE [Concomitant]
     Active Substance: CHLORHEXIDINE
     Dosage: ONGOING
     Route: 048
     Dates: start: 20171016
  50. CYPROHEPTADINE HCL [Concomitant]
     Active Substance: CYPROHEPTADINE HYDROCHLORIDE
     Dosage: ONGOING
     Route: 065
     Dates: start: 20180307
  51. GABAPENTIN. [Concomitant]
     Active Substance: GABAPENTIN
     Dosage: ONGOING
     Route: 065
     Dates: start: 20171022
  52. TRANEXAMIC ACID. [Concomitant]
     Active Substance: TRANEXAMIC ACID
     Route: 065
     Dates: start: 20180413, end: 20180413
  53. VANCOMYCINE [Concomitant]
     Active Substance: VANCOMYCIN
     Dosage: ONGOING
     Route: 065
     Dates: start: 20171009
  54. ACTEMRA [Suspect]
     Active Substance: TOCILIZUMAB
     Indication: GRAFT VERSUS HOST DISEASE
     Route: 065
     Dates: start: 20171216
  55. CASPOFUNGIN [Concomitant]
     Active Substance: CASPOFUNGIN
     Route: 065
     Dates: start: 20171016, end: 20180421
  56. CELLULOSE [Concomitant]
     Active Substance: POWDERED CELLULOSE
     Route: 065
     Dates: start: 20180412, end: 20180412
  57. DIPHENHYDRAMINE. [Concomitant]
     Active Substance: DIPHENHYDRAMINE
     Dosage: ONGOING
     Route: 065
     Dates: start: 20171005
  58. FILGRASTIM [Concomitant]
     Active Substance: FILGRASTIM
     Dosage: ONGOING
     Route: 065
     Dates: start: 20171005
  59. HYDROCORTISONE. [Concomitant]
     Active Substance: HYDROCORTISONE
     Dosage: ONGOING
     Route: 065
     Dates: start: 20171005
  60. LEVOCARNITINE. [Concomitant]
     Active Substance: LEVOCARNITINE
     Dosage: ONGOING
     Route: 065
     Dates: start: 20171110
  61. LIDOCAINE HCL [Concomitant]
     Active Substance: LIDOCAINE HYDROCHLORIDE
     Route: 065
     Dates: start: 20180410, end: 20180419
  62. METHYLPREDNISOLONE. [Concomitant]
     Active Substance: METHYLPREDNISOLONE
     Dosage: ONGOING
     Route: 065
     Dates: start: 20171010
  63. OCTREOTIDE ACETATE. [Concomitant]
     Active Substance: OCTREOTIDE ACETATE
     Route: 065
     Dates: start: 20180204, end: 20180410
  64. PENTAMIDINE [Concomitant]
     Active Substance: PENTAMIDINE
     Dosage: ONGOING
     Route: 065
     Dates: start: 20171116
  65. RUXOLITINIB [Concomitant]
     Active Substance: RUXOLITINIB
     Route: 065
     Dates: start: 20180106, end: 20180418
  66. IMMUNE GLOBULIN [Concomitant]
     Active Substance: HUMAN IMMUNOGLOBULIN G
     Dosage: ONGOING
     Route: 065
     Dates: start: 20171011
  67. EVEROLIMUS. [Concomitant]
     Active Substance: EVEROLIMUS
     Route: 065
     Dates: start: 20180225, end: 20180408
  68. LEVOFLOXACIN. [Concomitant]
     Active Substance: LEVOFLOXACIN
     Dosage: ONGOING
     Route: 065
     Dates: start: 20171017
  69. SPIRONOLACTONE. [Concomitant]
     Active Substance: SPIRONOLACTONE
     Route: 065
     Dates: start: 20171209, end: 20180413
  70. TOBRAMYCINE [Concomitant]
     Active Substance: TOBRAMYCIN SULFATE
     Dosage: ONGOING
     Route: 065
     Dates: start: 20180331

REACTIONS (12)
  - Cholestasis [Not Recovered/Not Resolved]
  - Azotaemia [Unknown]
  - Fluid overload [Unknown]
  - Portal hypertension [Not Recovered/Not Resolved]
  - Multiple organ dysfunction syndrome [Fatal]
  - Ascites [Not Recovered/Not Resolved]
  - Blood bilirubin increased [Not Recovered/Not Resolved]
  - Pneumonia aspiration [Unknown]
  - Bacteraemia [Unknown]
  - Candida sepsis [Fatal]
  - Septic shock [Fatal]
  - Lactic acidosis [Unknown]

NARRATIVE: CASE EVENT DATE: 20171220
